FAERS Safety Report 13558432 (Version 2)
Quarter: 2017Q3

REPORT INFORMATION
  Report Type: Report from Study
  Country: None (occurrence: BR)
  Receive Date: 20170517
  Receipt Date: 20170912
  Transmission Date: 20171127
  Serious: Yes (Other)
  Sender: FDA-Public Use
  Company Number: BR-ABBVIE-16K-020-1655386-00

PATIENT
  Age: 47 Year
  Sex: Female
  Weight: 80 kg

DRUGS (22)
  1. AVAMYS [Concomitant]
     Active Substance: FLUTICASONE FUROATE
     Indication: RHINITIS ALLERGIC
     Route: 045
  2. SIMETHICONE (DIMETHICONE) [Concomitant]
     Active Substance: DIMETHICONE
     Indication: CHRONIC GASTRITIS
     Route: 048
  3. FAMOTIDINE. [Concomitant]
     Active Substance: FAMOTIDINE
     Indication: ARTHRALGIA
     Route: 048
     Dates: start: 2015, end: 201704
  4. HUMIRA [Suspect]
     Active Substance: ADALIMUMAB
     Indication: ANKYLOSING SPONDYLITIS
     Route: 058
     Dates: start: 20160522, end: 201610
  5. RINOSORO [Concomitant]
     Indication: SINUSITIS
     Route: 045
  6. AVAMYS [Concomitant]
     Active Substance: FLUTICASONE FUROATE
     Indication: SINUSITIS
     Route: 045
  7. METHOTREXATE. [Concomitant]
     Active Substance: METHOTREXATE
     Indication: RHEUMATOID ARTHRITIS
     Route: 048
     Dates: start: 2014
  8. LACRIFILM [Concomitant]
     Active Substance: CARBOXYMETHYLCELLULOSE SODIUM
     Indication: EYE LUBRICATION THERAPY
     Route: 050
     Dates: start: 201604
  9. PANTOPRAZOLE [Concomitant]
     Active Substance: PANTOPRAZOLE
     Indication: CHRONIC GASTRITIS
     Route: 048
  10. CYCLOBENZAPRINE. [Concomitant]
     Active Substance: CYCLOBENZAPRINE
     Indication: ARTHRALGIA
     Route: 048
     Dates: start: 2015, end: 201704
  11. HUMIRA [Suspect]
     Active Substance: ADALIMUMAB
     Route: 058
  12. ARADOIS [Concomitant]
     Active Substance: LOSARTAN POTASSIUM
     Route: 048
     Dates: start: 2015, end: 201611
  13. ARADOIS [Concomitant]
     Active Substance: LOSARTAN POTASSIUM
     Indication: HYPERTENSION
     Route: 048
  14. FOLIC ACID. [Concomitant]
     Active Substance: FOLIC ACID
     Indication: ANAEMIA PROPHYLAXIS
     Route: 048
     Dates: start: 2014
  15. ARADOIS [Concomitant]
     Active Substance: LOSARTAN POTASSIUM
     Route: 048
     Dates: start: 201611
  16. FOSTAIR [Concomitant]
     Active Substance: BECLOMETHASONE\FORMOTEROL
     Indication: DYSPNOEA
     Route: 055
     Dates: start: 2015
  17. PREDSIM [Concomitant]
     Active Substance: PREDNISOLONE
     Indication: ARTHRALGIA
     Route: 048
  18. DIACEREIN [Concomitant]
     Active Substance: DIACEREIN
     Indication: ARTHRALGIA
     Route: 048
     Dates: start: 2015, end: 201704
  19. HUMIRA [Suspect]
     Active Substance: ADALIMUMAB
     Route: 058
  20. METHOTREXATE. [Concomitant]
     Active Substance: METHOTREXATE
     Indication: ARTHRITIS
     Route: 048
     Dates: start: 201603
  21. DIMETHICONE. [Concomitant]
     Active Substance: DIMETHICONE
     Indication: CHRONIC GASTRITIS
     Route: 048
  22. RANITIDINE HYDROCHLORIDE. [Concomitant]
     Active Substance: RANITIDINE HYDROCHLORIDE
     Indication: CHRONIC GASTRITIS
     Route: 048

REACTIONS (14)
  - Swelling [Recovering/Resolving]
  - Dry eye [Recovered/Resolved]
  - Arthralgia [Recovering/Resolving]
  - Blood pressure increased [Recovered/Resolved]
  - Diarrhoea [Recovered/Resolved]
  - Osteoarthritis [Recovering/Resolving]
  - Musculoskeletal pain [Recovering/Resolving]
  - Chills [Recovered/Resolved]
  - Blood pressure increased [Recovered/Resolved]
  - Body temperature increased [Recovering/Resolving]
  - Pyrexia [Recovered/Resolved]
  - Blindness transient [Recovered/Resolved]
  - Cyst [Recovering/Resolving]
  - Pollakiuria [Recovered/Resolved]

NARRATIVE: CASE EVENT DATE: 2016
